FAERS Safety Report 4918836-7 (Version None)
Quarter: 2006Q1

REPORT INFORMATION
  Report Type: 
  Country: None (occurrence: None)
  Receive Date: 20060221
  Receipt Date: 20060221
  Transmission Date: 20060701
  Serious: Yes (Life-Threatening, Hospitalization)
  Sender: FDA-Public Use
  Company Number: None

PATIENT
  Sex: Female
  Weight: 71.1 kg

DRUGS (2)
  1. CAPECITABINE  500 MG   ROCHE [Suspect]
     Indication: COLORECTAL CANCER
     Dosage: 1500 MG  QAM  PO;  1000 MG  QPM PO
     Route: 048
     Dates: start: 20060124, end: 20060206
  2. RADIOTHERAPY [Concomitant]

REACTIONS (10)
  - BLOOD ELECTROLYTES ABNORMAL [None]
  - CREATININE RENAL CLEARANCE DECREASED [None]
  - DIARRHOEA [None]
  - FALL [None]
  - INTERNATIONAL NORMALISED RATIO INCREASED [None]
  - MALNUTRITION [None]
  - NAUSEA [None]
  - NEUTROPENIA [None]
  - PANCYTOPENIA [None]
  - RETCHING [None]
